FAERS Safety Report 20695273 (Version 1)
Quarter: 2022Q2

REPORT INFORMATION
  Report Type: Spontaneous
  Country: US (occurrence: None)
  Receive Date: 20220408
  Receipt Date: 20220408
  Transmission Date: 20220721
  Serious: Yes (Hospitalization, Disabling, Other)
  Sender: FDA-Public Use
  Company Number: None

PATIENT
  Age: 64 Year
  Sex: Female
  Weight: 72.57 kg

DRUGS (1)
  1. GADOLINIUM [Suspect]
     Active Substance: GADOLINIUM

REACTIONS (4)
  - Immunodeficiency [None]
  - Blood immunoglobulin A decreased [None]
  - Blood immunoglobulin G decreased [None]
  - Blood immunoglobulin M increased [None]

NARRATIVE: CASE EVENT DATE: 20220207
